FAERS Safety Report 14954346 (Version 2)
Quarter: 2018Q2

REPORT INFORMATION
  Report Type: Report from Study
  Country: PA (occurrence: PA)
  Receive Date: 20180530
  Receipt Date: 20180618
  Transmission Date: 20180711
  Serious: Yes (Death, Hospitalization)
  Sender: FDA-Public Use
  Company Number: PHHY2018PA011439

PATIENT
  Age: 24 Year
  Sex: Male

DRUGS (1)
  1. TASIGNA [Suspect]
     Active Substance: NILOTINIB
     Indication: LYMPHOCYTIC LEUKAEMIA
     Dosage: 200 MG, UNK
     Route: 065

REACTIONS (4)
  - Fatigue [Unknown]
  - Blood test abnormal [Not Recovered/Not Resolved]
  - Death [Fatal]
  - Movement disorder [Unknown]

NARRATIVE: CASE EVENT DATE: 20180513
